FAERS Safety Report 20608653 (Version 1)
Quarter: 2022Q1

REPORT INFORMATION
  Report Type: Spontaneous
  Country: JP (occurrence: JP)
  Receive Date: 20220317
  Receipt Date: 20220317
  Transmission Date: 20220423
  Serious: Yes (Hospitalization)
  Sender: FDA-Public Use
  Company Number: JP-JNJFOC-20220330909

PATIENT
  Age: 53 Year
  Sex: Female
  Weight: 39.6 kg

DRUGS (2)
  1. TRABECTEDIN [Suspect]
     Active Substance: TRABECTEDIN
     Indication: Soft tissue neoplasm
     Route: 041
     Dates: start: 20211206
  2. TRABECTEDIN [Suspect]
     Active Substance: TRABECTEDIN
     Route: 041
     Dates: start: 20220201

REACTIONS (2)
  - Rhabdomyolysis [Recovering/Resolving]
  - Hypokalaemia [Recovering/Resolving]

NARRATIVE: CASE EVENT DATE: 20220228
